FAERS Safety Report 6569626-3 (Version None)
Quarter: 2010Q1

REPORT INFORMATION
  Report Type: 
  Country: None (occurrence: None)
  Receive Date: 20100203
  Receipt Date: 20100203
  Transmission Date: 20100710
  Serious: Yes (Other)
  Sender: FDA-Public Use
  Company Number: None

PATIENT
  Sex: Male
  Weight: 82.3279 kg

DRUGS (1)
  1. ZESTORETIC [Suspect]
     Dosage: 10/25 MG ONCE DAILY BY MOUTH
     Route: 048
     Dates: start: 20050811

REACTIONS (1)
  - BLOOD PRESSURE INADEQUATELY CONTROLLED [None]
